FAERS Safety Report 17911003 (Version 1)
Quarter: 2020Q2

REPORT INFORMATION
  Report Type: Spontaneous
  Country: US (occurrence: US)
  Receive Date: 20200617
  Receipt Date: 20200617
  Transmission Date: 20200714
  Serious: Yes (Hospitalization)
  Sender: FDA-Public Use
  Company Number: None

PATIENT
  Age: 28 Year
  Sex: Male

DRUGS (2)
  1. TRIKAFTA [Suspect]
     Active Substance: ELEXACAFTOR\IVACAFTOR\TEZACAFTOR
     Indication: CYSTIC FIBROSIS
     Dosage: ?          OTHER FREQUENCY:2AM+1QPM;?
     Route: 048
     Dates: start: 202006
  2. TOBI PODHALER [Suspect]
     Active Substance: TOBRAMYCIN

REACTIONS (1)
  - Malaise [None]

NARRATIVE: CASE EVENT DATE: 20200601
